FAERS Safety Report 7631348-5 (Version None)
Quarter: 2011Q3

REPORT INFORMATION
  Report Type: 
  Country: None (occurrence: None)
  Receive Date: 20110725
  Receipt Date: 20110714
  Transmission Date: 20111222
  Serious: Yes (Hospitalization)
  Sender: FDA-Public Use
  Company Number: AT-AMGEN-AUTCT2011007145

PATIENT
  Age: 67 Year
  Sex: Male

DRUGS (5)
  1. AMLODIPINE [Concomitant]
     Dosage: UNK
     Dates: start: 20100323
  2. DEANXIT [Concomitant]
     Dosage: UNK UNK, QD
     Route: 048
     Dates: start: 20100508
  3. ROSIX [Concomitant]
  4. ROMIPLOSTIM [Suspect]
     Indication: MYELODYSPLASTIC SYNDROME
     Dosage: UNK UNK, QWK
     Route: 058
     Dates: start: 20101214
  5. CARVEDILOL [Concomitant]
     Dosage: 25 MG, UNK
     Route: 048
     Dates: start: 20100101

REACTIONS (1)
  - SPEECH DISORDER [None]
